FAERS Safety Report 6828158-5 (Version None)
Quarter: 2010Q3

REPORT INFORMATION
  Report Type: 
  Country: None (occurrence: None)
  Receive Date: 20100708
  Receipt Date: 20100708
  Transmission Date: 20110219
  Serious: Yes (Other)
  Sender: FDA-Public Use
  Company Number: None

PATIENT
  Sex: Male
  Weight: 17 kg

DRUGS (2)
  1. INCRELEX [Suspect]
     Indication: BODY HEIGHT BELOW NORMAL
     Dosage: 18 UNITS -0.11 MG/KG BID SQ
     Route: 058
     Dates: start: 20090313, end: 20100515
  2. INCRELEX [Suspect]
     Indication: INSULIN-LIKE GROWTH FACTOR INCREASED
     Dosage: 18 UNITS -0.11 MG/KG BID SQ
     Route: 058
     Dates: start: 20090313, end: 20100515

REACTIONS (2)
  - ADENOIDAL HYPERTROPHY [None]
  - TONSILLAR HYPERTROPHY [None]
